FAERS Safety Report 6451618-6 (Version None)
Quarter: 2009Q4

REPORT INFORMATION
  Report Type: 
  Country: None (occurrence: None)
  Receive Date: 20091120
  Receipt Date: 20091120
  Transmission Date: 20100525
  Serious: Yes (Other)
  Sender: FDA-Public Use
  Company Number: None

PATIENT
  Age: 40 Year
  Sex: Female
  Weight: 57.1532 kg

DRUGS (1)
  1. PROAIR HFA [Suspect]
     Indication: ASTHMA
     Dosage: 1 TO 2 PUFFS EVERY 4-6 HOURS INHAL
     Route: 055
     Dates: start: 20090906, end: 20090912

REACTIONS (2)
  - ASTHMA [None]
  - DIARRHOEA [None]
